FAERS Safety Report 8929012 (Version 1)
Quarter: 2012Q4

REPORT INFORMATION
  Report Type: 
  Country: JP (occurrence: JP)
  Receive Date: 20121128
  Receipt Date: 20121128
  Transmission Date: 20130627
  Serious: No
  Sender: FDA-Public Use
  Company Number: JP-JNJFOC-20120711385

PATIENT
  Age: 70 Year
  Sex: Female

DRUGS (2)
  1. DUROTEP [Suspect]
     Indication: PAIN
     Route: 062
     Dates: start: 20120717, end: 20120718
  2. DUROTEP [Suspect]
     Indication: BACK PAIN
     Route: 062
     Dates: start: 20120717, end: 20120718

REACTIONS (5)
  - Drug prescribing error [Unknown]
  - Pain [Unknown]
  - Nausea [Recovered/Resolved]
  - Dizziness [Recovered/Resolved]
  - Somnolence [Recovered/Resolved]
